FAERS Safety Report 16244086 (Version 2)
Quarter: 2019Q2

REPORT INFORMATION
  Report Type: Spontaneous
  Country: US (occurrence: US)
  Receive Date: 20190426
  Receipt Date: 20190513
  Transmission Date: 20190711
  Serious: Yes (Death)
  Sender: FDA-Public Use
  Company Number: US-PFIZER INC-2019176576

PATIENT
  Age: 8 Month

DRUGS (1)
  1. CALCIUM CHLORIDE. [Suspect]
     Active Substance: CALCIUM CHLORIDE
     Dosage: 1.4 G, UNK (INFUSION)

REACTIONS (4)
  - Condition aggravated [Fatal]
  - Cardiac dysfunction [Fatal]
  - Product administration error [Fatal]
  - Accidental overdose [Fatal]
